FAERS Safety Report 17446623 (Version 7)
Quarter: 2020Q3

REPORT INFORMATION
  Report Type: Spontaneous
  Country: US (occurrence: US)
  Receive Date: 20200221
  Receipt Date: 20200730
  Transmission Date: 20201102
  Serious: Yes (Hospitalization, Other)
  Sender: FDA-Public Use
  Company Number: US-MALLINCKRODT-T202000727

PATIENT
  Sex: Male
  Weight: 95 kg

DRUGS (4)
  1. H.P. ACTHAR [Suspect]
     Active Substance: CORTICOTROPIN
     Dosage: 80 UNITS, TWO TIMES A WEEK
     Route: 058
     Dates: start: 202002, end: 2020
  2. H.P. ACTHAR [Suspect]
     Active Substance: CORTICOTROPIN
     Dosage: 80 UNITS (1ML), TWO TIMES A WEEK
     Route: 058
     Dates: start: 202006
  3. H.P. ACTHAR [Suspect]
     Active Substance: CORTICOTROPIN
     Dosage: 80 UNITS TWICE WEEKLY
     Route: 058
     Dates: start: 202003, end: 2020
  4. H.P. ACTHAR [Suspect]
     Active Substance: CORTICOTROPIN
     Indication: POLYMYOSITIS
     Dosage: 80 UNITS TWO TIMES A WEEK
     Route: 058
     Dates: start: 202001, end: 202002

REACTIONS (10)
  - Pyrexia [Not Recovered/Not Resolved]
  - Food refusal [Unknown]
  - Confusional state [Not Recovered/Not Resolved]
  - Polymyositis [Recovered/Resolved]
  - Lung disorder [Not Recovered/Not Resolved]
  - Urosepsis [Unknown]
  - Blood glucose increased [Not Recovered/Not Resolved]
  - Dehydration [Recovered/Resolved]
  - Gastric infection [Unknown]
  - Bedridden [Unknown]

NARRATIVE: CASE EVENT DATE: 2020
